FAERS Safety Report 5830373-4 (Version None)
Quarter: 2008Q3

REPORT INFORMATION
  Report Type: 
  Country: None (occurrence: None)
  Receive Date: 20080801
  Receipt Date: 20080723
  Transmission Date: 20090109
  Serious: Yes (Other)
  Sender: FDA-Public Use
  Company Number: US-JNJCH-2008019252

PATIENT
  Age: 53 Year
  Sex: Female
  Weight: 117.9 kg

DRUGS (8)
  1. BENGAY ULTRA STRENGTH [Suspect]
     Indication: PAIN IN EXTREMITY
     Dosage: TEXT:^ENOUGH TO COVER THE AREA^, ONCE/EVENING
     Route: 061
     Dates: start: 20080714, end: 20080717
  2. BENADRYL [Concomitant]
     Indication: PRURITUS
     Route: 065
  3. MORPHINE [Concomitant]
     Indication: PAIN
     Route: 048
  4. PROTONIX [Concomitant]
     Indication: GASTRIC DISORDER
     Route: 065
  5. NIFEDIPINE [Concomitant]
     Indication: HYPERTENSION
     Route: 065
  6. PLAVIX [Concomitant]
     Indication: ANTICOAGULANT THERAPY
     Route: 065
  7. ADVAIR DISKUS 100/50 [Concomitant]
     Indication: ASTHMA
     Dosage: TEXT:250/50MG 2 X A DAY
     Route: 065
  8. ALBUTEROL [Concomitant]
     Indication: ASTHMA
     Route: 055

REACTIONS (2)
  - APPLICATION SITE BURN [None]
  - APPLICATION SITE DISCOLOURATION [None]
